FAERS Safety Report 6089264-9 (Version None)
Quarter: 2009Q1

REPORT INFORMATION
  Report Type: 
  Country: None (occurrence: None)
  Receive Date: 20090224
  Receipt Date: 20090220
  Transmission Date: 20090719
  Serious: Yes (Hospitalization)
  Sender: FDA-Public Use
  Company Number: US-MERCK-0811USA00205

PATIENT
  Age: 64 Year
  Sex: Male
  Weight: 90 kg

DRUGS (8)
  1. ZOCOR [Suspect]
     Indication: ANGIOPLASTY
     Route: 048
     Dates: start: 20020101, end: 20020101
  2. ZOCOR [Suspect]
     Route: 048
     Dates: start: 20081001, end: 20081102
  3. ZOCOR [Suspect]
     Indication: ARTERIAL DISORDER
     Route: 048
     Dates: start: 20020101, end: 20020101
  4. ZOCOR [Suspect]
     Route: 048
     Dates: start: 20081001, end: 20081102
  5. PLAVIX [Concomitant]
     Route: 065
  6. ASPIRIN [Concomitant]
     Route: 065
  7. PRAVASTATIN SODIUM [Concomitant]
     Route: 065
  8. NIASPAN [Concomitant]
     Route: 065

REACTIONS (3)
  - ARTERIAL DISORDER [None]
  - MUSCLE SPASMS [None]
  - MYALGIA [None]
